FAERS Safety Report 8698935 (Version 9)
Quarter: 2014Q1

REPORT INFORMATION
  Report Type: Spontaneous
  Country: JP (occurrence: JP)
  Receive Date: 20120802
  Receipt Date: 20140306
  Transmission Date: 20141002
  Serious: Yes (Life-Threatening, Hospitalization, Other)
  Sender: FDA-Public Use
  Company Number: JP-ELI_LILLY_AND_COMPANY-JP201207005721

PATIENT
  Age: 11 Year
  Sex: Male
  Weight: 29 kg

DRUGS (6)
  1. STRATTERA [Suspect]
     Indication: ATTENTION DEFICIT/HYPERACTIVITY DISORDER
     Dosage: 5 MG, BID
     Route: 048
     Dates: start: 20110706, end: 20120715
  2. STRATTERA [Suspect]
     Dosage: 35 MG, QD
     Route: 048
     Dates: end: 20110920
  3. STRATTERA [Suspect]
     Dosage: 5 MG, BID
     Route: 048
     Dates: start: 20120514
  4. STRATTERA [Suspect]
     Dosage: 10 MG, BID
     Route: 048
     Dates: start: 20120523
  5. STRATTERA [Suspect]
     Dosage: UNK UNK, BID
     Route: 048
     Dates: start: 201206, end: 20120713
  6. STRATTERA [Suspect]
     Dosage: 10 MG, BID
     Route: 048
     Dates: start: 20120714, end: 20120714

REACTIONS (3)
  - Electrocardiogram QT prolonged [Recovered/Resolved]
  - Altered state of consciousness [Recovered/Resolved]
  - Ventricular extrasystoles [Recovered/Resolved]
